FAERS Safety Report 14055820 (Version 1)
Quarter: 2017Q4

REPORT INFORMATION
  Report Type: Spontaneous
  Country: GB (occurrence: GB)
  Receive Date: 20171006
  Receipt Date: 20171006
  Transmission Date: 20180321
  Serious: Yes (Hospitalization, Other)
  Sender: FDA-Public Use
  Company Number: GB-PFIZER INC-2016309117

PATIENT
  Age: 52 Year
  Sex: Female

DRUGS (1)
  1. LYRICA [Suspect]
     Active Substance: PREGABALIN
     Indication: ANXIETY
     Dosage: UNK
     Dates: start: 20160130, end: 201606

REACTIONS (12)
  - Pain of skin [Unknown]
  - Drug hypersensitivity [Unknown]
  - Bedridden [Unknown]
  - Condition aggravated [Unknown]
  - Sleep disorder [Unknown]
  - Skin exfoliation [Unknown]
  - Impaired work ability [Unknown]
  - Product use in unapproved indication [Recovered/Resolved]
  - Psoriasis [Unknown]
  - Erythrodermic psoriasis [Unknown]
  - Anger [Unknown]
  - Suicidal ideation [Unknown]

NARRATIVE: CASE EVENT DATE: 20160130
